FAERS Safety Report 17171979 (Version 1)
Quarter: 2019Q4

REPORT INFORMATION
  Report Type: Spontaneous
  Country: JP (occurrence: JP)
  Receive Date: 20191219
  Receipt Date: 20191219
  Transmission Date: 20200122
  Serious: Yes (Other)
  Sender: FDA-Public Use
  Company Number: JP-PFIZER INC-2019542546

PATIENT
  Sex: Male

DRUGS (1)
  1. VIAGRA [Suspect]
     Active Substance: SILDENAFIL CITRATE
     Dosage: UNK
     Route: 048

REACTIONS (3)
  - Cerebrovascular accident [Unknown]
  - Cerebral haemorrhage [Unknown]
  - Hypertension [Unknown]

NARRATIVE: CASE EVENT DATE: 20190824
